FAERS Safety Report 18965645 (Version 2)
Quarter: 2021Q1

REPORT INFORMATION
  Report Type: Other
  Country: US (occurrence: US)
  Receive Date: 20210304
  Receipt Date: 20210305
  Transmission Date: 20210420
  Serious: Yes (Death)
  Sender: FDA-Public Use
  Company Number: US-ROCHE-2782447

PATIENT
  Age: 76 Year
  Sex: Female

DRUGS (39)
  1. NITROSTAT [Concomitant]
     Active Substance: NITROGLYCERIN
  2. ALCAFTADINE [Concomitant]
     Active Substance: ALCAFTADINE
  3. IPRATROPIUM BROMIDE. [Concomitant]
     Active Substance: IPRATROPIUM BROMIDE
  4. ONDANSETRON [Concomitant]
     Active Substance: ONDANSETRON
  5. CODEINE [Concomitant]
     Active Substance: CODEINE
  6. ACETAMINOPHEN. [Concomitant]
     Active Substance: ACETAMINOPHEN
  7. DIGOXIN. [Concomitant]
     Active Substance: DIGOXIN
  8. LASIX [Concomitant]
     Active Substance: FUROSEMIDE
  9. LIDOCAINE HCL [Concomitant]
     Active Substance: LIDOCAINE HYDROCHLORIDE
  10. METHOCARBAMOL. [Concomitant]
     Active Substance: METHOCARBAMOL
  11. POLYETHYLENE [Concomitant]
     Active Substance: HIGH DENSITY POLYETHYLENE
  12. PREMARIN [Concomitant]
     Active Substance: ESTROGENS, CONJUGATED
  13. XOLAIR [Suspect]
     Active Substance: OMALIZUMAB
  14. XOLAIR [Suspect]
     Active Substance: OMALIZUMAB
  15. XOLAIR [Suspect]
     Active Substance: OMALIZUMAB
     Route: 058
  16. AZELASTINE HCL [Concomitant]
     Active Substance: AZELASTINE HYDROCHLORIDE
  17. HYDROCODONE [Concomitant]
     Active Substance: HYDROCODONE
  18. XOLAIR [Suspect]
     Active Substance: OMALIZUMAB
  19. BUDESONIDE. [Concomitant]
     Active Substance: BUDESONIDE
  20. NYSTATIN. [Concomitant]
     Active Substance: NYSTATIN
  21. PENTAFLUOROPROPANE [Concomitant]
  22. OMEPRAZOLE. [Concomitant]
     Active Substance: OMEPRAZOLE
  23. XOPENEX HFA [Concomitant]
     Active Substance: LEVALBUTEROL TARTRATE
  24. SPIRONOLACTONE. [Concomitant]
     Active Substance: SPIRONOLACTONE
  25. XYZAL [Concomitant]
     Active Substance: LEVOCETIRIZINE DIHYDROCHLORIDE
  26. ASPIR LOW [Concomitant]
     Active Substance: ASPIRIN
  27. CLOTRIMAZOLE. [Concomitant]
     Active Substance: CLOTRIMAZOLE
  28. OXYCODONE [Concomitant]
     Active Substance: OXYCODONE
  29. METOPROLOL TARTRATE. [Concomitant]
     Active Substance: METOPROLOL TARTRATE
  30. XOLAIR [Suspect]
     Active Substance: OMALIZUMAB
  31. BROVANA [Concomitant]
     Active Substance: ARFORMOTEROL TARTRATE
  32. FLOXIN OTIC [Concomitant]
     Active Substance: OFLOXACIN
  33. XOLAIR [Suspect]
     Active Substance: OMALIZUMAB
     Indication: ASTHMA
     Route: 058
  34. D?MANNOSE [Concomitant]
  35. DICYCLOMINE HCL [Concomitant]
     Active Substance: DICYCLOMINE HYDROCHLORIDE
  36. FOLIC ACID. [Concomitant]
     Active Substance: FOLIC ACID
  37. NITROGLYCERIN. [Concomitant]
     Active Substance: NITROGLYCERIN
  38. ZOFRAN [Concomitant]
     Active Substance: ONDANSETRON HYDROCHLORIDE
  39. TRAZODONE [Concomitant]
     Active Substance: TRAZODONE HYDROCHLORIDE

REACTIONS (1)
  - Death [Fatal]

NARRATIVE: CASE EVENT DATE: 20210114
